FAERS Safety Report 9323091 (Version 1)
Quarter: 2013Q2

REPORT INFORMATION
  Report Type: Spontaneous
  Country: US (occurrence: US)
  Receive Date: 20130603
  Receipt Date: 20130603
  Transmission Date: 20140414
  Serious: Yes (Other)
  Sender: FDA-Public Use
  Company Number: US-BIOGENIDEC-2013BI048285

PATIENT
  Age: 57 Year
  Sex: Female

DRUGS (3)
  1. AVONEX [Suspect]
     Indication: MULTIPLE SCLEROSIS
     Route: 030
     Dates: start: 20130130
  2. MICARDIS [Concomitant]
     Indication: BLOOD PRESSURE INCREASED
  3. MEDICATION NOS [Concomitant]
     Indication: BLOOD PRESSURE INCREASED

REACTIONS (12)
  - Hypertension [Recovered/Resolved]
  - Blood pressure increased [Recovered/Resolved]
  - Fall [Recovered/Resolved]
  - Excoriation [Recovered/Resolved]
  - Stress [Unknown]
  - Weight decreased [Unknown]
  - Hypoaesthesia [Unknown]
  - Balance disorder [Recovered/Resolved]
  - Nervousness [Recovered/Resolved]
  - Dyskinesia [Recovered/Resolved]
  - Multiple sclerosis relapse [Recovered/Resolved]
  - Chest pain [Recovered/Resolved]
